FAERS Safety Report 24314155 (Version 5)
Quarter: 2024Q4

REPORT INFORMATION
  Report Type: Spontaneous
  Country: US (occurrence: US)
  Receive Date: 20240912
  Receipt Date: 20241226
  Transmission Date: 20250115
  Serious: Yes (Death, Hospitalization, Other)
  Sender: IOVANCE BIOTHERAPEUTICS
  Company Number: US-IOVANCE BIOTHERAPEUTICS, INC-2024IOV000064

PATIENT

DRUGS (10)
  1. AMTAGVI [Suspect]
     Active Substance: LIFILEUCEL
     Indication: Metastatic malignant melanoma
     Dosage: AT LEAST 7.5 X 10^9 CELLS
     Route: 042
     Dates: start: 20240826, end: 20240826
  2. ALDESLEUKIN [Suspect]
     Active Substance: ALDESLEUKIN
     Indication: Interleukin therapy
     Dosage: 42.7 MILLION INTERNATIONAL UNIT, BID
     Route: 042
     Dates: start: 20240826, end: 20240826
  3. ALDESLEUKIN [Suspect]
     Active Substance: ALDESLEUKIN
     Dosage: 42.7 MILLION INTERNATIONAL UNIT, BID
     Route: 042
     Dates: start: 20240827, end: 20240827
  4. ALDESLEUKIN [Suspect]
     Active Substance: ALDESLEUKIN
     Dosage: 42.7 MILLION INTERNATIONAL UNIT, BID
     Route: 042
     Dates: start: 20240828, end: 20240828
  5. ALDESLEUKIN [Suspect]
     Active Substance: ALDESLEUKIN
     Dosage: 42.7 MILLION INTERNATIONAL UNIT, BID
     Route: 042
     Dates: start: 20240829, end: 20240829
  6. CYCLOPHOSPHAMIDE [Suspect]
     Active Substance: CYCLOPHOSPHAMIDE
     Indication: Lymphodepletion
     Dosage: UNK, SINGLE
     Route: 042
     Dates: start: 20240819, end: 20240819
  7. CYCLOPHOSPHAMIDE [Suspect]
     Active Substance: CYCLOPHOSPHAMIDE
     Dosage: UNK, SINGLE
     Route: 042
     Dates: start: 20240821, end: 20240821
  8. FLUDARABINE [Suspect]
     Active Substance: FLUDARABINE PHOSPHATE
     Indication: Lymphodepletion
     Dosage: UNK
     Route: 042
     Dates: start: 20240819, end: 20240819
  9. FLUDARABINE [Suspect]
     Active Substance: FLUDARABINE PHOSPHATE
     Dosage: UNK
     Route: 042
     Dates: start: 20240821, end: 20240824
  10. MESNA [Concomitant]
     Active Substance: MESNA
     Dosage: 1709 MILLIGRAM, SINGLE IVPB
     Route: 042
     Dates: start: 20240821, end: 20240821

REACTIONS (14)
  - Malignant neoplasm progression [Fatal]
  - Abdominal distension [Unknown]
  - Shock [Unknown]
  - Metastases to peritoneum [Unknown]
  - Pleural effusion [Unknown]
  - Seizure like phenomena [Unknown]
  - Cerebral haemorrhage [Unknown]
  - Atrial fibrillation [Unknown]
  - Acute kidney injury [Unknown]
  - Neutropenia [Unknown]
  - Hypoxia [Unknown]
  - Respiratory distress [Unknown]
  - Hypotension [Unknown]
  - Mental status changes [Unknown]

NARRATIVE: CASE EVENT DATE: 20240820
